FAERS Safety Report 17018920 (Version 2)
Quarter: 2019Q4

REPORT INFORMATION
  Report Type: Spontaneous
  Country: AU (occurrence: AU)
  Receive Date: 20191112
  Receipt Date: 20191205
  Transmission Date: 20200122
  Serious: Yes (Other)
  Sender: FDA-Public Use
  Company Number: AU-ALEXION-A201916716

PATIENT
  Sex: Female

DRUGS (1)
  1. SOLIRIS [Suspect]
     Active Substance: ECULIZUMAB
     Indication: ATYPICAL HAEMOLYTIC URAEMIC SYNDROME
     Dosage: UNK, Q2W
     Route: 065
     Dates: start: 2019

REACTIONS (5)
  - Fibrin D dimer increased [Unknown]
  - Disseminated intravascular coagulation [Unknown]
  - Condition aggravated [Unknown]
  - Pulmonary embolism [Unknown]
  - Renal tubular necrosis [Unknown]
